FAERS Safety Report 4675863-5 (Version None)
Quarter: 2005Q2

REPORT INFORMATION
  Report Type: 
  Country: None (occurrence: None)
  Receive Date: 20050527
  Receipt Date: 20050519
  Transmission Date: 20051028
  Serious: Yes (Other)
  Sender: FDA-Public Use
  Company Number: US-KINGPHARMUSA00001-K200500663

PATIENT
  Age: 53 Year
  Sex: Female

DRUGS (2)
  1. FLORINEF [Suspect]
     Dates: start: 19980101, end: 20041101
  2. CORTISONE [Suspect]
     Dosage: 25 MG, QD, 1.5/1DAY
     Dates: start: 19980101, end: 20041101

REACTIONS (4)
  - FEELING COLD [None]
  - FLUID RETENTION [None]
  - MYALGIA [None]
  - STEROID WITHDRAWAL SYNDROME [None]
